FAERS Safety Report 4667798-9 (Version None)
Quarter: 2005Q2

REPORT INFORMATION
  Report Type: 
  Country: None (occurrence: None)
  Receive Date: 20050520
  Receipt Date: 20050504
  Transmission Date: 20051028
  Serious: Yes (Other)
  Sender: FDA-Public Use
  Company Number: DE-GLAXOSMITHKLINE-D0046547A

PATIENT
  Sex: Female

DRUGS (2)
  1. ELMENDOS [Suspect]
     Route: 048
  2. HYPNOREX [Concomitant]
     Route: 065

REACTIONS (4)
  - AGITATION [None]
  - HYPERTHYROIDISM [None]
  - RESTLESSNESS [None]
  - SLEEP DISORDER [None]
